FAERS Safety Report 5058440-6 (Version None)
Quarter: 2006Q3

REPORT INFORMATION
  Report Type: 
  Country: None (occurrence: None)
  Receive Date: 20060721
  Receipt Date: 20060608
  Transmission Date: 20061208
  Serious: Yes (Hospitalization, Other)
  Sender: FDA-Public Use
  Company Number: PHHO2006FR09362

PATIENT
  Age: 21 Year
  Sex: Male
  Weight: 42 kg

DRUGS (4)
  1. EFFERALGAN [Concomitant]
     Indication: HEADACHE
     Dates: start: 20060604, end: 20060605
  2. ICL670A [Suspect]
     Indication: BLOOD IRON INCREASED
     Dosage: 875 MG, QD
     Route: 048
     Dates: start: 20060524, end: 20060605
  3. ICL670A [Suspect]
     Dosage: NO TREATMENT
     Dates: start: 20060606, end: 20060609
  4. ICL670A [Suspect]
     Dosage: 875 MG, QD
     Dates: start: 20060610, end: 20060622

REACTIONS (13)
  - ABDOMINAL PAIN [None]
  - ALANINE AMINOTRANSFERASE [None]
  - ALANINE AMINOTRANSFERASE INCREASED [None]
  - ASPARTATE AMINOTRANSFERASE INCREASED [None]
  - ASTHENIA [None]
  - CARDIOMYOPATHY [None]
  - DIZZINESS [None]
  - DYSPNOEA [None]
  - FACE OEDEMA [None]
  - HAEMOGLOBIN DECREASED [None]
  - HEADACHE [None]
  - NAUSEA [None]
  - VERTIGO [None]
